FAERS Safety Report 22042390 (Version 2)
Quarter: 2023Q1

REPORT INFORMATION
  Report Type: Report from Study
  Country: JP (occurrence: JP)
  Receive Date: 20230228
  Receipt Date: 20230322
  Transmission Date: 20230418
  Serious: Yes (Other)
  Sender: FDA-Public Use
  Company Number: JP-TAKEDA-2023TJP002431

PATIENT
  Age: 53 Year
  Sex: Male
  Weight: 43.6 kg

DRUGS (14)
  1. LEUPROLIDE ACETATE [Suspect]
     Active Substance: LEUPROLIDE ACETATE
     Indication: Bulbospinal muscular atrophy congenital
     Dosage: 11.25 MILLIGRAM, Q3MONTHS
     Route: 058
     Dates: start: 20171218
  2. DAYVIGO [Concomitant]
     Active Substance: LEMBOREXANT
     Indication: Product used for unknown indication
     Dosage: 2.5 MILLIGRAM
     Route: 065
     Dates: start: 20220829
  3. TEPRENONE [Concomitant]
     Active Substance: TEPRENONE
     Indication: Product used for unknown indication
     Dosage: 3 DOSAGE FORM
     Route: 065
  4. MAGNESIUM OXIDE [Concomitant]
     Active Substance: MAGNESIUM OXIDE
     Indication: Product used for unknown indication
     Dosage: 500 MILLIGRAM
     Route: 065
  5. LYRICA [Concomitant]
     Active Substance: PREGABALIN
     Indication: Bulbospinal muscular atrophy congenital
     Dosage: 25 MILLIGRAM
     Route: 065
     Dates: start: 20210412, end: 20220828
  6. LYRICA [Concomitant]
     Active Substance: PREGABALIN
     Indication: Bulbospinal muscular atrophy congenital
     Dosage: 75 MILLIGRAM
     Route: 065
     Dates: start: 20220829
  7. HERBALS [Concomitant]
     Active Substance: HERBALS
     Indication: Product used for unknown indication
     Dosage: 3 DOSAGE FORM
     Route: 065
  8. MOSAPRIDE CITRATE [Concomitant]
     Active Substance: MOSAPRIDE CITRATE
     Indication: Constipation
     Dosage: 15 MILLIGRAM
     Route: 065
  9. TRAZODONE [Concomitant]
     Active Substance: TRAZODONE HYDROCHLORIDE
     Indication: Insomnia
     Dosage: 25 MILLIGRAM
     Route: 065
     Dates: start: 20200706, end: 20210704
  10. MINODRONIC ACID [Concomitant]
     Active Substance: MINODRONIC ACID
     Indication: Osteoporosis
     Dosage: 50 MILLIGRAM
     Route: 065
     Dates: end: 20220619
  11. ZOLPIDEM TARTRATE [Concomitant]
     Active Substance: ZOLPIDEM TARTRATE
     Indication: Product used for unknown indication
     Dosage: 5 MILLIGRAM
     Route: 065
     Dates: end: 20210119
  12. CLONAZEPAM [Concomitant]
     Active Substance: CLONAZEPAM
     Indication: Insomnia
     Dosage: 1 MILLIGRAM
     Route: 065
  13. ROZEREM [Concomitant]
     Active Substance: RAMELTEON
     Indication: Insomnia
     Dosage: 8 MILLIGRAM
     Route: 065
     Dates: start: 20200120, end: 20220828
  14. PREGABALIN [Concomitant]
     Active Substance: PREGABALIN
     Indication: Bulbospinal muscular atrophy congenital
     Dosage: 75 MILLIGRAM
     Route: 065
     Dates: start: 20220829

REACTIONS (1)
  - Osteoporosis [Not Recovered/Not Resolved]

NARRATIVE: CASE EVENT DATE: 20220608
